FAERS Safety Report 4586172-7 (Version None)
Quarter: 2005Q1

REPORT INFORMATION
  Report Type: 
  Country: None (occurrence: None)
  Receive Date: 20050125
  Receipt Date: 20041018
  Transmission Date: 20050727
  Serious: No
  Sender: FDA-Public Use
  Company Number: USA041081563

PATIENT
  Age: 66 Year
  Sex: Female

DRUGS (8)
  1. FORTEO [Suspect]
     Indication: OSTEOPOROSIS
     Dates: start: 20041012
  2. ACTIGALL [Concomitant]
  3. SYNTHORID (LEVOTHYROXINE SODIUM) [Concomitant]
  4. ZEBETA (BISOPROSOL FUMARATE) [Concomitant]
  5. ZESTRIL [Concomitant]
  6. EFFEXOR [Concomitant]
  7. KLONOPIN [Concomitant]
  8. EVISTA [Concomitant]

REACTIONS (6)
  - BALANCE DISORDER [None]
  - CHEST DISCOMFORT [None]
  - HEADACHE [None]
  - INJECTION SITE ERYTHEMA [None]
  - INJECTION SITE PRURITUS [None]
  - THROAT IRRITATION [None]
